FAERS Safety Report 9143474 (Version 1)
Quarter: 2013Q1

REPORT INFORMATION
  Report Type: Spontaneous
  Country: US (occurrence: US)
  Receive Date: 20130306
  Receipt Date: 20130306
  Transmission Date: 20140127
  Serious: No
  Sender: FDA-Public Use
  Company Number: US-ENDO PHARMACEUTICALS INC.-OPER20120658

PATIENT
  Sex: Male

DRUGS (6)
  1. OPANA ER 20MG [Suspect]
     Indication: BACK PAIN
     Route: 048
     Dates: start: 201108, end: 201204
  2. OPANA ER 20MG [Suspect]
     Indication: ARTHRALGIA
     Route: 048
     Dates: start: 201204
  3. OPANA ER 20MG [Suspect]
     Indication: SURGERY
  4. OPANA ER 20MG [Suspect]
     Indication: KNEE OPERATION
  5. PERCOCET [Suspect]
     Indication: BACK PAIN
     Dosage: UNKNOWN
     Route: 048
     Dates: end: 2011
  6. PERCOCET [Suspect]
     Indication: ARTHRALGIA

REACTIONS (2)
  - Bone loss [Not Recovered/Not Resolved]
  - Depression [Not Recovered/Not Resolved]
